FAERS Safety Report 25728838 (Version 1)
Quarter: 2025Q3

REPORT INFORMATION
  Report Type: Spontaneous
  Country: US (occurrence: US)
  Receive Date: 20250826
  Receipt Date: 20250826
  Transmission Date: 20251020
  Serious: Yes (Other)
  Sender: NOVO NORDISK
  Company Number: US-NOVOPROD-1506172

PATIENT
  Age: 83 Year

DRUGS (3)
  1. OZEMPIC [Suspect]
     Active Substance: SEMAGLUTIDE
     Indication: Product used for unknown indication
     Dates: start: 2025
  2. OZEMPIC [Suspect]
     Active Substance: SEMAGLUTIDE
     Dates: start: 2025, end: 202507
  3. NOVOLOG [Suspect]
     Active Substance: INSULIN ASPART
     Indication: Product used for unknown indication

REACTIONS (4)
  - Vascular access malfunction [Unknown]
  - Fatigue [Unknown]
  - Drug intolerance [Unknown]
  - Decreased appetite [Unknown]
